FAERS Safety Report 8013847-X (Version None)
Quarter: 2011Q4

REPORT INFORMATION
  Report Type: 
  Country: None (occurrence: None)
  Receive Date: 20111223
  Receipt Date: 20111212
  Transmission Date: 20120403
  Serious: Yes (Other)
  Sender: FDA-Public Use
  Company Number: 1000026475

PATIENT
  Age: 56 Year
  Sex: Female
  Weight: 54 kg

DRUGS (3)
  1. MEILAX (ETHYL LOFLAZEPATE) [Suspect]
     Dosage: 8 MG  (4 MG, 2 IN 1 D), ORAL
     Route: 048
     Dates: start: 20111013, end: 20111028
  2. DORAL [Concomitant]
  3. LEXAPRO [Suspect]
     Indication: DEPRESSION
     Dosage: 10 MG (10 MG, 1 IN 1 D), ORAL
     Route: 048
     Dates: start: 20110929, end: 20111028

REACTIONS (8)
  - ACTIVATION SYNDROME [None]
  - PERSONALITY CHANGE [None]
  - BLOOD CHOLESTEROL INCREASED [None]
  - ANGER [None]
  - AGITATION [None]
  - AGGRESSION [None]
  - BLOOD ALKALINE PHOSPHATASE INCREASED [None]
  - BLOOD LACTATE DEHYDROGENASE INCREASED [None]
